FAERS Safety Report 5420294-3 (Version None)
Quarter: 2007Q3

REPORT INFORMATION
  Report Type: 
  Country: None (occurrence: None)
  Receive Date: 20070820
  Receipt Date: 20070817
  Transmission Date: 20080115
  Serious: Yes (Other)
  Sender: FDA-Public Use
  Company Number: US-MERCK-0707USA03132

PATIENT
  Age: 58 Year
  Sex: Female
  Weight: 97 kg

DRUGS (4)
  1. JANUVIA [Suspect]
     Indication: TYPE 2 DIABETES MELLITUS
     Route: 048
     Dates: start: 20070626, end: 20070713
  2. GLUCOPHAGE [Concomitant]
     Route: 065
  3. CLARITIN [Concomitant]
     Route: 065
  4. ASPIRIN [Concomitant]
     Route: 065

REACTIONS (2)
  - ARTHRALGIA [None]
  - JOINT SWELLING [None]
